FAERS Safety Report 24199766 (Version 5)
Quarter: 2025Q2

REPORT INFORMATION
  Report Type: Report from Study
  Country: GB (occurrence: GB)
  Receive Date: 20240812
  Receipt Date: 20250516
  Transmission Date: 20250717
  Serious: Yes (Hospitalization)
  Sender: NOVARTIS
  Company Number: GB-002147023-NVSC2024GB160946

PATIENT
  Age: 57 Year
  Sex: Male
  Weight: 88 kg

DRUGS (70)
  1. LUTATHERA [Suspect]
     Active Substance: LUTETIUM OXODOTREOTIDE LU-177
     Indication: Gastroenteropancreatic neuroendocrine tumour disease
     Route: 065
     Dates: start: 20220615
  2. LUTATHERA [Suspect]
     Active Substance: LUTETIUM OXODOTREOTIDE LU-177
     Route: 065
     Dates: start: 20220824
  3. LUTATHERA [Suspect]
     Active Substance: LUTETIUM OXODOTREOTIDE LU-177
     Route: 065
     Dates: start: 20221102
  4. LUTATHERA [Suspect]
     Active Substance: LUTETIUM OXODOTREOTIDE LU-177
     Route: 065
     Dates: start: 20230118
  5. SANDOSTATIN LAR DEPOT [Suspect]
     Active Substance: OCTREOTIDE ACETATE
     Indication: Product used for unknown indication
     Dosage: 30 MG, Q4W
     Route: 058
     Dates: start: 20190513
  6. SANDOSTATIN LAR DEPOT [Suspect]
     Active Substance: OCTREOTIDE ACETATE
  7. SANDOSTATIN LAR DEPOT [Suspect]
     Active Substance: OCTREOTIDE ACETATE
  8. LANREOTIDE [Suspect]
     Active Substance: LANREOTIDE
     Indication: Product used for unknown indication
     Dosage: 120 MG, QW
     Route: 058
     Dates: start: 20190513
  9. ACETAMINOPHEN [Concomitant]
     Active Substance: ACETAMINOPHEN
     Indication: Abdominal pain
     Route: 048
     Dates: start: 20140609
  10. ACETAMINOPHEN [Concomitant]
     Active Substance: ACETAMINOPHEN
     Indication: Abdominal pain upper
     Route: 048
     Dates: start: 20220720, end: 20220720
  11. ACETAMINOPHEN [Concomitant]
     Active Substance: ACETAMINOPHEN
     Indication: Analgesic therapy
     Route: 042
     Dates: start: 20240129, end: 20240201
  12. ACETAMINOPHEN [Concomitant]
     Active Substance: ACETAMINOPHEN
     Indication: Analgesic therapy
     Route: 048
     Dates: start: 20240710, end: 20240719
  13. ACETAMINOPHEN [Concomitant]
     Active Substance: ACETAMINOPHEN
     Indication: Pain
     Route: 048
     Dates: start: 20241007, end: 202412
  14. ALBUTEROL [Concomitant]
     Active Substance: ALBUTEROL
     Indication: Asthma
     Route: 050
     Dates: start: 20140609
  15. CODEINE PHOSPHATE [Concomitant]
     Active Substance: CODEINE PHOSPHATE
     Indication: Abdominal pain
     Route: 048
     Dates: start: 20140609, end: 20140612
  16. MORPHINE SULFATE [Concomitant]
     Active Substance: MORPHINE SULFATE
     Indication: Procedural pain
     Route: 048
     Dates: start: 20140609, end: 20140612
  17. MORPHINE SULFATE [Concomitant]
     Active Substance: MORPHINE SULFATE
     Indication: Analgesic therapy
     Route: 048
     Dates: start: 20241009, end: 20241016
  18. LACTULOSE [Concomitant]
     Active Substance: LACTULOSE
     Indication: Post procedural constipation
     Route: 048
     Dates: start: 20140609, end: 20140614
  19. SANDOSTATIN [Concomitant]
     Active Substance: OCTREOTIDE ACETATE
     Indication: Product used for unknown indication
     Route: 030
     Dates: start: 20190513
  20. LANSOPRAZOLE [Concomitant]
     Active Substance: LANSOPRAZOLE
     Indication: Reflux gastritis
     Route: 048
     Dates: start: 201908
  21. CREON [Concomitant]
     Active Substance: PANCRELIPASE AMYLASE\PANCRELIPASE LIPASE\PANCRELIPASE PROTEASE
     Indication: Pancreatic enzyme replacement therapy
     Route: 048
     Dates: start: 20190908
  22. BECLOMETHASONE\FORMOTEROL [Concomitant]
     Active Substance: BECLOMETHASONE\FORMOTEROL
     Indication: Asthma
     Route: 050
     Dates: start: 2023
  23. BECLOMETHASONE\FORMOTEROL [Concomitant]
     Active Substance: BECLOMETHASONE\FORMOTEROL
     Indication: Asthma prophylaxis
     Route: 055
     Dates: start: 20240713
  24. LOPERAMIDE [Concomitant]
     Active Substance: LOPERAMIDE
     Indication: Diarrhoea
     Route: 048
     Dates: start: 2023
  25. LOPERAMIDE [Concomitant]
     Active Substance: LOPERAMIDE
     Route: 048
     Dates: start: 202312
  26. LANREOTIDE [Concomitant]
     Active Substance: LANREOTIDE
     Indication: Product used for unknown indication
     Route: 058
     Dates: start: 202305
  27. VITAMIN D NOS [Concomitant]
     Active Substance: CHOLECALCIFEROL\ERGOCALCIFEROL
     Indication: Vitamin D decreased
     Route: 048
     Dates: start: 202311
  28. OCTREOTIDE [Concomitant]
     Active Substance: OCTREOTIDE
     Indication: Product used for unknown indication
     Route: 058
     Dates: start: 202401
  29. OCTREOTIDE [Concomitant]
     Active Substance: OCTREOTIDE
     Route: 058
     Dates: start: 20240129, end: 20240201
  30. OCTREOTIDE [Concomitant]
     Active Substance: OCTREOTIDE
     Route: 058
     Dates: start: 20241005, end: 20241012
  31. OCTREOTIDE [Concomitant]
     Active Substance: OCTREOTIDE
     Route: 042
     Dates: start: 20241006, end: 20241010
  32. MUPIROCIN [Concomitant]
     Active Substance: MUPIROCIN
     Indication: Infection prophylaxis
     Route: 045
     Dates: start: 20240129, end: 20240130
  33. MUPIROCIN [Concomitant]
     Active Substance: MUPIROCIN
     Indication: Prophylaxis
     Route: 045
     Dates: start: 20241007, end: 20241011
  34. Octenisan [Concomitant]
     Indication: Infection prophylaxis
     Route: 050
     Dates: start: 20240129, end: 20240131
  35. Octenisan [Concomitant]
     Indication: Infection prophylaxis
     Route: 050
     Dates: start: 20241007, end: 20241011
  36. ENOXAPARIN [Concomitant]
     Active Substance: ENOXAPARIN
     Indication: Deep vein thrombosis
     Route: 058
     Dates: start: 20240129, end: 20240201
  37. ENOXAPARIN [Concomitant]
     Active Substance: ENOXAPARIN
     Route: 058
     Dates: start: 20240711, end: 20240719
  38. ENOXAPARIN [Concomitant]
     Active Substance: ENOXAPARIN
     Route: 058
     Dates: start: 20241006, end: 20241012
  39. ONDANSETRON [Concomitant]
     Active Substance: ONDANSETRON
     Indication: Antiemetic supportive care
     Route: 042
     Dates: start: 20240129, end: 20240201
  40. ONDANSETRON [Concomitant]
     Active Substance: ONDANSETRON
     Indication: Nausea
     Route: 048
     Dates: start: 202409
  41. POTASSIUM BICARBONATE\POTASSIUM CHLORIDE [Concomitant]
     Active Substance: POTASSIUM BICARBONATE\POTASSIUM CHLORIDE
     Indication: Mineral supplementation
     Route: 048
     Dates: start: 20240130, end: 20240201
  42. BUDESONIDE [Concomitant]
     Active Substance: BUDESONIDE
     Indication: Asthma prophylaxis
     Route: 055
     Dates: start: 20240711
  43. CIPROFLOXACIN [Concomitant]
     Active Substance: CIPROFLOXACIN
     Indication: Antibiotic therapy
     Route: 048
     Dates: start: 20240711, end: 20240718
  44. QUININE SULFATE [Concomitant]
     Active Substance: QUININE SULFATE
     Indication: Restless legs syndrome
     Route: 048
     Dates: start: 20240923
  45. OXYGEN [Concomitant]
     Active Substance: OXYGEN
     Indication: Oxygen therapy
     Route: 050
     Dates: start: 20241005, end: 20241016
  46. SODIUM CHLORIDE [Concomitant]
     Active Substance: SODIUM CHLORIDE
     Indication: Prophylaxis
     Route: 042
     Dates: start: 20241006, end: 20241011
  47. FRESH FROZEN PLASMA [Concomitant]
     Active Substance: HUMAN PLASMA
     Indication: Prophylaxis
     Route: 042
     Dates: start: 20241007, end: 20241007
  48. FLUCLOXACILLIN [Concomitant]
     Active Substance: FLUCLOXACILLIN
     Indication: Antibiotic therapy
     Route: 042
     Dates: start: 20241007, end: 20241008
  49. DEXTROSE [Concomitant]
     Active Substance: DEXTROSE MONOHYDRATE
     Indication: Prophylaxis
     Route: 042
     Dates: start: 20241007, end: 20241009
  50. DEXTROSE [Concomitant]
     Active Substance: DEXTROSE MONOHYDRATE
     Indication: Prophylaxis
     Route: 042
     Dates: start: 20241007, end: 20241011
  51. DEXTROSE [Concomitant]
     Active Substance: DEXTROSE MONOHYDRATE
     Indication: Prophylaxis
     Route: 042
     Dates: start: 20241007, end: 20241010
  52. DEXTROSE [Concomitant]
     Active Substance: DEXTROSE MONOHYDRATE
     Indication: Prophylaxis
     Route: 042
     Dates: start: 20241008, end: 20241011
  53. DEXTROSE [Concomitant]
     Active Substance: DEXTROSE MONOHYDRATE
     Indication: Prophylaxis
  54. DEXTROSE [Concomitant]
     Active Substance: DEXTROSE MONOHYDRATE
     Indication: Blood glucose decreased
  55. ARGIPRESSIN [Concomitant]
     Active Substance: ARGIPRESSIN
     Indication: Fluid replacement
     Route: 042
     Dates: start: 20241007, end: 20241009
  56. DOPAMINE [Concomitant]
     Active Substance: DOPAMINE HYDROCHLORIDE
     Indication: Blood pressure management
     Route: 042
     Dates: start: 20241007, end: 20241009
  57. PHENYLEPHRINE [Concomitant]
     Active Substance: PHENYLEPHRINE
     Indication: Blood pressure management
     Route: 042
     Dates: start: 20241007, end: 20241009
  58. MILRINONE [Concomitant]
     Active Substance: MILRINONE
     Indication: Postoperative care
     Route: 042
     Dates: start: 20241007, end: 20241011
  59. POTASSIUM CHLORIDE [Concomitant]
     Active Substance: POTASSIUM CHLORIDE
     Indication: Electrolyte substitution therapy
     Route: 042
     Dates: start: 20241007, end: 20241011
  60. CHLORPHENIRAMINE MALEATE [Concomitant]
     Active Substance: CHLORPHENIRAMINE MALEATE
     Indication: Sedative therapy
     Route: 042
     Dates: start: 20241007, end: 20241016
  61. AMLODIPINE [Concomitant]
     Active Substance: AMLODIPINE BESYLATE
     Indication: Hypertension
     Route: 048
     Dates: start: 20241008, end: 20241010
  62. ESOMEPRAZOLE [Concomitant]
     Active Substance: ESOMEPRAZOLE
     Indication: Antacid therapy
     Route: 042
     Dates: start: 20241008, end: 20241010
  63. FUROSEMIDE [Concomitant]
     Active Substance: FUROSEMIDE
     Indication: Fluid imbalance
     Route: 048
     Dates: start: 20241008, end: 20241010
  64. FUROSEMIDE [Concomitant]
     Active Substance: FUROSEMIDE
     Route: 048
     Dates: start: 20241017, end: 20241204
  65. CALCIUM GLUCONATE [Concomitant]
     Active Substance: CALCIUM GLUCONATE
     Indication: Blood calcium abnormal
     Route: 042
     Dates: start: 20241008, end: 20241016
  66. DOXAZOSIN MESYLATE [Concomitant]
     Active Substance: DOXAZOSIN MESYLATE
     Indication: Hypertension
     Route: 048
     Dates: start: 20241009, end: 20241009
  67. Peppermint water [Concomitant]
     Indication: Depressed mood
     Route: 048
     Dates: start: 20241009, end: 20241016
  68. WARFARIN [Concomitant]
     Active Substance: WARFARIN
     Indication: Prophylaxis
     Route: 048
     Dates: start: 20241011
  69. SENNA [Concomitant]
     Active Substance: SENNOSIDES
     Indication: Gastrointestinal motility disorder
     Route: 048
     Dates: start: 20241013, end: 20241016
  70. Fortisip Compact Protein [Concomitant]
     Indication: Product used for unknown indication
     Route: 065

REACTIONS (4)
  - Cholecystitis [Recovered/Resolved]
  - Biliary colic [Recovered/Resolved]
  - Peripheral swelling [Recovered/Resolved]
  - Abdominal pain [Recovered/Resolved]

NARRATIVE: CASE EVENT DATE: 20231001
